FAERS Safety Report 24533177 (Version 1)
Quarter: 2024Q4

REPORT INFORMATION
  Report Type: Spontaneous
  Country: US (occurrence: US)
  Receive Date: 20241022
  Receipt Date: 20241022
  Transmission Date: 20250115
  Serious: Yes (Death, Life-Threatening, Other)
  Sender: DR REDDYS
  Company Number: US-DRL-USA-LIT/USA/24/0015577

PATIENT

DRUGS (1)
  1. ALLOPURINOL [Suspect]
     Active Substance: ALLOPURINOL
     Indication: Product used for unknown indication

REACTIONS (3)
  - Drug reaction with eosinophilia and systemic symptoms [Fatal]
  - Encephalopathy [Fatal]
  - Electrolyte imbalance [Fatal]
